FAERS Safety Report 14815898 (Version 4)
Quarter: 2019Q3

REPORT INFORMATION
  Report Type: Spontaneous
  Country: TW (occurrence: TW)
  Receive Date: 20180426
  Receipt Date: 20190702
  Transmission Date: 20191004
  Serious: Yes (Hospitalization, Other)
  Sender: FDA-Public Use
  Company Number: TW-CELGENEUS-TWN-20180407538

PATIENT
  Age: 72 Year
  Sex: Male
  Weight: 77.1 kg

DRUGS (34)
  1. NYSTATIN. [Concomitant]
     Active Substance: NYSTATIN
     Dosage: 5000000 IU (INTERNATIONAL UNIT)
     Route: 061
     Dates: start: 20180408, end: 20180408
  2. ULTRACET [Concomitant]
     Active Substance: ACETAMINOPHEN\TRAMADOL HYDROCHLORIDE
     Indication: PAIN
  3. ALLOPURINOL. [Concomitant]
     Active Substance: ALLOPURINOL
     Route: 048
     Dates: start: 20180329
  4. POSACONAZOLE [Concomitant]
     Active Substance: POSACONAZOLE
     Indication: ANTIFUNGAL PROPHYLAXIS
     Dosage: 300 MILLIGRAM
     Route: 048
     Dates: start: 20180327
  5. FLUOCINONIDE. [Concomitant]
     Active Substance: FLUOCINONIDE
     Indication: SKIN INFECTION
     Dosage: 1 APPLICATION
     Route: 061
     Dates: start: 20180327, end: 20180403
  6. HYDROXYUREA. [Concomitant]
     Active Substance: HYDROXYUREA
     Indication: CYTOREDUCTIVE SURGERY
     Dosage: 2000 MILLIGRAM
     Route: 048
     Dates: start: 20180322, end: 20180325
  7. TAZOCIN [Concomitant]
     Active Substance: PIPERACILLIN SODIUM\TAZOBACTAM SODIUM
     Indication: FEBRILE NEUTROPENIA
     Dosage: 13.5 GRAM
     Route: 041
     Dates: start: 20180330, end: 20180413
  8. ULTRACET [Concomitant]
     Active Substance: ACETAMINOPHEN\TRAMADOL HYDROCHLORIDE
     Indication: ARTHRALGIA
  9. AZACITIDINE. [Suspect]
     Active Substance: AZACITIDINE
     Indication: ACUTE MYELOID LEUKAEMIA
     Dosage: 75 MILLIGRAM/SQ. METER
     Route: 058
     Dates: start: 20180330
  10. GRANISETRON [Concomitant]
     Active Substance: GRANISETRON
     Indication: PROPHYLAXIS OF NAUSEA AND VOMITING
     Dosage: 1 MILLIGRAM
     Route: 048
     Dates: start: 20180330, end: 20180405
  11. VENETOCLAX. [Concomitant]
     Active Substance: VENETOCLAX
     Route: 048
     Dates: start: 20180420
  12. LEVOCETIRIZINE [Concomitant]
     Active Substance: LEVOCETIRIZINE
     Indication: PRURITUS
  13. VENETOCLAX. [Concomitant]
     Active Substance: VENETOCLAX
     Indication: ACUTE MYELOID LEUKAEMIA
     Route: 048
     Dates: start: 20180330, end: 20180330
  14. VENETOCLAX. [Concomitant]
     Active Substance: VENETOCLAX
     Route: 048
     Dates: start: 20180330, end: 20180331
  15. BFLUID [Concomitant]
     Active Substance: AMINO ACIDS\DEXTROSE\ELECTROLYTES NOS\VITAMINS
     Indication: PROPHYLAXIS
     Route: 041
     Dates: start: 20180319, end: 20180411
  16. BFLUID [Concomitant]
     Active Substance: AMINO ACIDS\DEXTROSE\ELECTROLYTES NOS\VITAMINS
     Indication: DECREASED APPETITE
  17. FLUOCINONIDE. [Concomitant]
     Active Substance: FLUOCINONIDE
     Dosage: 1 APPLICATION
     Route: 061
     Dates: start: 20180403, end: 20180412
  18. ULTRACET [Concomitant]
     Active Substance: ACETAMINOPHEN\TRAMADOL HYDROCHLORIDE
     Indication: PAIN PROPHYLAXIS
  19. AZACITIDINE. [Suspect]
     Active Substance: AZACITIDINE
     Dosage: 75 MILLIGRAM/SQ. METER
     Route: 058
     Dates: start: 20180420
  20. ALPRAZOLAM. [Concomitant]
     Active Substance: ALPRAZOLAM
     Indication: INSOMNIA
     Dosage: .5 MILLIGRAM
     Route: 048
     Dates: start: 20180317, end: 20180506
  21. NYSTATIN. [Concomitant]
     Active Substance: NYSTATIN
     Dosage: 5000000 IU (INTERNATIONAL UNIT)
     Route: 061
     Dates: start: 20180413, end: 20180414
  22. HYDROXYUREA. [Concomitant]
     Active Substance: HYDROXYUREA
     Dosage: 2000 MILLIGRAM
     Route: 048
     Dates: start: 20180326, end: 20180328
  23. HYDROXYUREA. [Concomitant]
     Active Substance: HYDROXYUREA
     Dosage: 1000 MILLIGRAM
     Route: 048
     Dates: start: 20180328, end: 20180329
  24. LEVOCETIRIZINE [Concomitant]
     Active Substance: LEVOCETIRIZINE
     Indication: PRURITUS
     Route: 048
     Dates: start: 20180327, end: 20180419
  25. VALACICLOVIR [Concomitant]
     Active Substance: VALACYCLOVIR HYDROCHLORIDE
     Indication: PROPHYLAXIS
     Dosage: 3000 MILLIGRAM
     Route: 048
     Dates: start: 20180329, end: 20180407
  26. LEVOFLOXACIN. [Concomitant]
     Active Substance: LEVOFLOXACIN
     Indication: INFECTION PROPHYLAXIS
     Dosage: 500 MILLIGRAM
     Route: 048
     Dates: start: 20180329, end: 20180430
  27. ULTRACET [Concomitant]
     Active Substance: ACETAMINOPHEN\TRAMADOL HYDROCHLORIDE
     Indication: MOUTH ULCERATION
     Dosage: 4 TABLET
     Route: 048
     Dates: start: 20180319, end: 20180422
  28. ULTRACET [Concomitant]
     Active Substance: ACETAMINOPHEN\TRAMADOL HYDROCHLORIDE
     Indication: PROCTALGIA
  29. VENETOCLAX. [Concomitant]
     Active Substance: VENETOCLAX
     Route: 048
     Dates: start: 20180401, end: 20180406
  30. ALLOPURINOL. [Concomitant]
     Active Substance: ALLOPURINOL
     Indication: PROPHYLAXIS
     Route: 048
     Dates: start: 20180319, end: 20180327
  31. NYSTATIN. [Concomitant]
     Active Substance: NYSTATIN
     Indication: ANTIFUNGAL PROPHYLAXIS
     Dosage: 5000000 IU (INTERNATIONAL UNIT)
     Route: 061
     Dates: start: 20180318, end: 20180405
  32. GRANISETRON [Concomitant]
     Active Substance: GRANISETRON
     Indication: NAUSEA
     Dosage: 1 MILLIGRAM
     Route: 048
     Dates: start: 20180413, end: 20180415
  33. ALGITAB [Concomitant]
     Indication: PROPHYLAXIS
     Dosage: 3 TABLET
     Route: 048
     Dates: start: 20180324, end: 20180419
  34. VALACICLOVIR [Concomitant]
     Active Substance: VALACYCLOVIR HYDROCHLORIDE
     Indication: PROPHYLAXIS

REACTIONS (2)
  - Alanine aminotransferase increased [Recovered/Resolved]
  - Aspartate aminotransferase increased [Recovered/Resolved]

NARRATIVE: CASE EVENT DATE: 20180403
